FAERS Safety Report 7100170-0 (Version None)
Quarter: 2010Q4

REPORT INFORMATION
  Report Type: 
  Country: None (occurrence: None)
  Receive Date: 20101112
  Receipt Date: 20100714
  Transmission Date: 20110411
  Serious: No
  Sender: FDA-Public Use
  Company Number: A0870446A

PATIENT
  Age: 79 Year
  Sex: Male

DRUGS (13)
  1. CARVEDILOL [Suspect]
     Dosage: 3.125MG TWICE PER DAY
     Route: 048
     Dates: start: 20100706
  2. LEXAPRO [Concomitant]
  3. ISOSORBIDE DINITRATE [Concomitant]
  4. OSCAL D [Concomitant]
  5. ASPIRIN [Concomitant]
  6. VITAMIN D3 [Concomitant]
  7. MULTIVITAMIN [Concomitant]
  8. CALCIUM [Concomitant]
  9. CENTRUM SILVER [Concomitant]
  10. PRAVASTATIN [Concomitant]
  11. SYNTHROID [Concomitant]
  12. FOSINOPRIL SODIUM [Concomitant]
  13. ACTONEL [Concomitant]

REACTIONS (2)
  - DEPRESSION [None]
  - FATIGUE [None]
